FAERS Safety Report 11821688 (Version 1)
Quarter: 2015Q4

REPORT INFORMATION
  Report Type: Spontaneous
  Country: US (occurrence: US)
  Receive Date: 20151210
  Receipt Date: 20151210
  Transmission Date: 20160305
  Serious: No
  Sender: FDA-Public Use
  Company Number: US-JNJFOC-20150504265

PATIENT
  Age: 70 Year
  Sex: Male
  Weight: 110 kg

DRUGS (2)
  1. IMBRUVICA [Suspect]
     Active Substance: IBRUTINIB
     Indication: WALDENSTROM^S MACROGLOBULINAEMIA
     Route: 048
     Dates: start: 20150422, end: 20150428
  2. FISH OIL [Concomitant]
     Active Substance: FISH OIL
     Dates: start: 201501

REACTIONS (6)
  - Haematuria [Unknown]
  - White blood cell count increased [Unknown]
  - Haemoptysis [Not Recovered/Not Resolved]
  - Platelet count decreased [Recovering/Resolving]
  - Stomatitis [Unknown]
  - Fatigue [Unknown]

NARRATIVE: CASE EVENT DATE: 2015
